FAERS Safety Report 11066472 (Version 2)
Quarter: 2015Q2

REPORT INFORMATION
  Report Type: Spontaneous
  Country: None (occurrence: None)
  Receive Date: 20150423
  Receipt Date: 20150429
  Transmission Date: 20150821
  Serious: Yes (Life-Threatening, Hospitalization)
  Sender: FDA-Public Use
  Company Number: 2015040036

PATIENT
  Age: 78 Year
  Sex: Female

DRUGS (1)
  1. TORASEMIDE (TORASEMIDE) [Suspect]
     Active Substance: TORSEMIDE
     Indication: OEDEMA PERIPHERAL
     Route: 048
     Dates: start: 201306

REACTIONS (20)
  - Bundle branch block right [None]
  - Hypotension [None]
  - Accidental overdose [None]
  - Urinary tract infection [None]
  - Gallbladder enlargement [None]
  - Cardiomegaly [None]
  - Pancreatic disorder [None]
  - Aspiration [None]
  - Hypokalaemia [None]
  - General physical condition abnormal [None]
  - Wheezing [None]
  - Supraventricular extrasystoles [None]
  - Oxygen saturation decreased [None]
  - Chest X-ray abnormal [None]
  - Cerebellar infarction [None]
  - Dysphagia [None]
  - Blood lactate dehydrogenase increased [None]
  - Somnolence [None]
  - Hypertension [None]
  - Dehydration [None]

NARRATIVE: CASE EVENT DATE: 201306
